FAERS Safety Report 9341202 (Version 2)
Quarter: 2016Q4

REPORT INFORMATION
  Report Type: Spontaneous
  Country: NL (occurrence: NL)
  Receive Date: 20130611
  Receipt Date: 20161223
  Transmission Date: 20170207
  Serious: Yes (Other)
  Sender: FDA-Public Use
  Company Number: NL-009507513-1306NLD002441

PATIENT
  Age: 65 Year
  Sex: Male

DRUGS (4)
  1. SIMVASTATIN. [Suspect]
     Active Substance: SIMVASTATIN
     Indication: HYPERCHOLESTEROLAEMIA
     Dosage: 1 TIMES PER 1 DAYS 1 DF
     Route: 048
     Dates: start: 201210, end: 201304
  2. PREDNISOLON [Concomitant]
     Active Substance: PREDNISOLONE
     Dosage: 20 MG, QOD
     Dates: start: 200809
  3. FOSAMAX [Concomitant]
     Active Substance: ALENDRONATE SODIUM
     Dosage: 70 MG, QW
     Route: 048
     Dates: start: 200901
  4. CALCIO (CALCIUM CARBONATE) [Concomitant]
     Dosage: 500 MG, QD
     Dates: start: 200901

REACTIONS (1)
  - Ocular myasthenia [Unknown]

NARRATIVE: CASE EVENT DATE: 201210
